FAERS Safety Report 7817658-7 (Version None)
Quarter: 2011Q4

REPORT INFORMATION
  Report Type: 
  Country: None (occurrence: None)
  Receive Date: 20111017
  Receipt Date: 20111011
  Transmission Date: 20120403
  Serious: Yes (Life-Threatening, Hospitalization, Other)
  Sender: FDA-Public Use
  Company Number: US-JNJFOC-20111005049

PATIENT
  Age: 38 Year
  Sex: Male
  Weight: 113.4 kg

DRUGS (7)
  1. ULTRAM [Suspect]
     Indication: PRODUCT USED FOR UNKNOWN INDICATION
     Route: 048
  2. LORTAB [Suspect]
     Indication: PRODUCT USED FOR UNKNOWN INDICATION
     Route: 048
  3. CARISOPRODOL [Suspect]
     Indication: PRODUCT USED FOR UNKNOWN INDICATION
     Route: 048
  4. ACETAMINOPHEN [Suspect]
     Route: 065
  5. BENZODIAZEPINE NOS [Suspect]
     Indication: PRODUCT USED FOR UNKNOWN INDICATION
     Route: 048
  6. HYDROCODONE BITARTRATE [Suspect]
     Indication: PRODUCT USED FOR UNKNOWN INDICATION
     Route: 065
  7. ACETAMINOPHEN [Suspect]
     Indication: PRODUCT USED FOR UNKNOWN INDICATION
     Route: 065

REACTIONS (10)
  - HEART RATE INCREASED [None]
  - LOSS OF CONSCIOUSNESS [None]
  - CONVULSION [None]
  - TOXICITY TO VARIOUS AGENTS [None]
  - BLOOD PH INCREASED [None]
  - OXYGEN SATURATION INCREASED [None]
  - CARBON DIOXIDE INCREASED [None]
  - MULTIPLE DRUG OVERDOSE [None]
  - BLOOD BICARBONATE INCREASED [None]
  - DYSARTHRIA [None]
